FAERS Safety Report 7335347-2 (Version None)
Quarter: 2011Q1

REPORT INFORMATION
  Report Type: 
  Country: None (occurrence: None)
  Receive Date: 20110307
  Receipt Date: 20110301
  Transmission Date: 20110831
  Serious: No
  Sender: FDA-Public Use
  Company Number: US-PFIZER INC-2011024599

PATIENT
  Sex: Male
  Weight: 77 kg

DRUGS (7)
  1. PREDNISONE [Concomitant]
     Indication: ANKYLOSING SPONDYLITIS
     Dosage: UNK
  2. FOLIC ACID [Concomitant]
     Dosage: UNK
  3. CHANTIX [Suspect]
     Dosage: 1 MG, 2X/DAY
     Route: 048
  4. LOSARTAN [Concomitant]
     Indication: HYPERTENSION
     Dosage: UNK
  5. CHANTIX [Suspect]
     Indication: SMOKING CESSATION THERAPY
     Dosage: 0.5 MG, 1X/DAY
     Route: 048
     Dates: start: 20101228
  6. GABAPENTIN [Concomitant]
     Dosage: UNK
  7. ETANERCEPT [Concomitant]
     Indication: ARTHRITIS
     Dosage: UNK

REACTIONS (2)
  - NAUSEA [None]
  - ACTIVITIES OF DAILY LIVING IMPAIRED [None]
